FAERS Safety Report 5755607-6 (Version None)
Quarter: 2008Q2

REPORT INFORMATION
  Report Type: 
  Country: None (occurrence: None)
  Receive Date: 20080602
  Receipt Date: 20080519
  Transmission Date: 20081010
  Serious: Yes (Hospitalization)
  Sender: FDA-Public Use
  Company Number: US-JNJFOC-20071205019

PATIENT
  Sex: Male
  Weight: 79.83 kg

DRUGS (26)
  1. TRAMADOL HYDROCHLORIDE [Suspect]
     Route: 048
  2. TRAMADOL HYDROCHLORIDE [Suspect]
     Route: 048
  3. TRAMADOL HYDROCHLORIDE [Suspect]
     Indication: OSTEOARTHRITIS
     Route: 048
  4. MELOXICAM [Suspect]
     Route: 048
  5. MELOXICAM [Suspect]
     Route: 048
  6. MELOXICAM [Suspect]
     Indication: OSTEOARTHRITIS
     Route: 048
  7. CALCIUM [Concomitant]
     Route: 065
  8. ASCORBIC ACID [Concomitant]
     Route: 065
  9. PRAVASTATIN [Concomitant]
     Route: 065
  10. SURFAK [Concomitant]
     Route: 065
  11. SURFAK [Concomitant]
     Route: 065
  12. SURFAK [Concomitant]
     Route: 065
  13. POTASSIUM CITRATE [Concomitant]
     Route: 065
  14. PRILOSEC [Concomitant]
     Route: 065
  15. MULTI-VITAMIN [Concomitant]
     Route: 065
  16. METRONIDAZOLE HCL [Concomitant]
     Route: 065
  17. DESONIDE [Concomitant]
     Route: 065
  18. UREA [Concomitant]
     Route: 065
  19. SODIUM FLUORIDE [Concomitant]
     Route: 065
  20. SENOKOT [Concomitant]
     Route: 065
  21. SENOKOT [Concomitant]
     Route: 065
  22. ASPIRIN [Concomitant]
     Route: 065
  23. TYLENOL [Concomitant]
     Route: 065
  24. ERYTHROMYCIN [Concomitant]
     Route: 047
  25. VANICREAM [Concomitant]
     Route: 065
  26. NIACIN [Concomitant]
     Route: 065

REACTIONS (2)
  - BASAL CELL CARCINOMA [None]
  - SQUAMOUS CELL CARCINOMA [None]
